FAERS Safety Report 19969372 (Version 1)
Quarter: 2021Q4

REPORT INFORMATION
  Report Type: Spontaneous
  Country: LU (occurrence: LU)
  Receive Date: 20211019
  Receipt Date: 20211019
  Transmission Date: 20220303
  Serious: Yes (Other)
  Sender: FDA-Public Use
  Company Number: None

PATIENT
  Age: 37 Year
  Sex: Male

DRUGS (1)
  1. ZITHROMAX [Suspect]
     Active Substance: AZITHROMYCIN DIHYDRATE
     Indication: Pharyngitis bacterial
     Dosage: 500 MG, 1X/DAY
     Route: 048
     Dates: start: 20210913, end: 20210914

REACTIONS (1)
  - Epidermolysis [Recovering/Resolving]

NARRATIVE: CASE EVENT DATE: 20210913
